FAERS Safety Report 22624270 (Version 9)
Quarter: 2025Q1

REPORT INFORMATION
  Report Type: Spontaneous
  Country: US (occurrence: US)
  Receive Date: 20230621
  Receipt Date: 20250224
  Transmission Date: 20250408
  Serious: Yes (Hospitalization, Other)
  Sender: CSL BEHRING
  Company Number: US-BEH-2023159975

PATIENT
  Age: 49 Year
  Sex: Female

DRUGS (38)
  1. HIZENTRA [Suspect]
     Active Substance: HUMAN IMMUNOGLOBULIN G
     Indication: Immunodeficiency
     Dosage: 14 GRAM, QOW
     Route: 058
     Dates: start: 20220819
  2. HIZENTRA [Suspect]
     Active Substance: HUMAN IMMUNOGLOBULIN G
     Indication: Hypogammaglobulinaemia
     Dosage: 14 G, QOW
     Route: 058
     Dates: start: 20240926
  3. HIZENTRA [Suspect]
     Active Substance: HUMAN IMMUNOGLOBULIN G
     Indication: Crohn^s disease
  4. CYCLOBENZAPRINE [Concomitant]
     Active Substance: CYCLOBENZAPRINE
  5. DICLOFENAC [Concomitant]
     Active Substance: DICLOFENAC
  6. FORTEO [Concomitant]
     Active Substance: TERIPARATIDE
  7. ACETAMINOPHEN\OXYCODONE HYDROCHLORIDE [Concomitant]
     Active Substance: ACETAMINOPHEN\OXYCODONE HYDROCHLORIDE
  8. PERCOCET [Concomitant]
     Active Substance: ACETAMINOPHEN\OXYCODONE HYDROCHLORIDE
  9. POTASSIUM [Concomitant]
     Active Substance: POTASSIUM
  10. PROTONIX [Concomitant]
     Active Substance: PANTOPRAZOLE SODIUM
  11. STELARA [Concomitant]
     Active Substance: USTEKINUMAB
  12. STELARA [Concomitant]
     Active Substance: USTEKINUMAB
  13. TAPAZOLE [Concomitant]
     Active Substance: METHIMAZOLE
  14. VITAMIN D [Concomitant]
     Active Substance: VITAMIN D NOS
  15. FLUOXETINE [Concomitant]
     Active Substance: FLUOXETINE HYDROCHLORIDE
  16. FLUOXETINE [Concomitant]
     Active Substance: FLUOXETINE HYDROCHLORIDE
  17. METHIMAZOLE [Concomitant]
     Active Substance: METHIMAZOLE
  18. COMBIVENT [Concomitant]
     Active Substance: ALBUTEROL SULFATE\IPRATROPIUM BROMIDE
  19. EPINEPHRINE [Concomitant]
     Active Substance: EPINEPHRINE
  20. FENOFIBRATE [Concomitant]
     Active Substance: FENOFIBRATE
  21. FLUTICASONE [Concomitant]
     Active Substance: FLUTICASONE
  22. MONTELUKAST [Concomitant]
     Active Substance: MONTELUKAST
  23. TRAZODONE [Concomitant]
     Active Substance: TRAZODONE HYDROCHLORIDE
  24. VITAMIN D [Concomitant]
     Active Substance: VITAMIN D NOS
  25. METHOCARBAMOL [Concomitant]
     Active Substance: METHOCARBAMOL
  26. PENTOXIFYLLINE [Concomitant]
     Active Substance: PENTOXIFYLLINE
  27. ALPRAZOLAM [Concomitant]
     Active Substance: ALPRAZOLAM
  28. AMPHETAMINE [Concomitant]
     Active Substance: AMPHETAMINE
  29. CLOBETASOL [Concomitant]
     Active Substance: CLOBETASOL
  30. DEXAMETHASONE PHOSPHATE [Concomitant]
     Active Substance: DEXAMETHASONE PHOSPHATE
  31. DIPRIVAN [Concomitant]
     Active Substance: PROPOFOL
  32. ELIQUIS [Concomitant]
     Active Substance: APIXABAN
  33. FUROSEMIDE [Concomitant]
     Active Substance: FUROSEMIDE
  34. MIDAZOLAM [Concomitant]
     Active Substance: MIDAZOLAM
  35. NALOXONE HCL [Concomitant]
     Active Substance: NALOXONE HYDROCHLORIDE
  36. NORTRIPTYLINE [Concomitant]
     Active Substance: NORTRIPTYLINE
  37. PANTOPRAZOLE [Concomitant]
     Active Substance: PANTOPRAZOLE
  38. TRAMADOL HCL [Concomitant]
     Active Substance: TRAMADOL HYDROCHLORIDE

REACTIONS (37)
  - Illness [Unknown]
  - Therapy interrupted [Unknown]
  - Fatigue [Unknown]
  - Headache [Unknown]
  - Arthralgia [Unknown]
  - Impaired quality of life [Not Recovered/Not Resolved]
  - Weight fluctuation [Not Recovered/Not Resolved]
  - Diarrhoea [Not Recovered/Not Resolved]
  - Abdominal pain [Not Recovered/Not Resolved]
  - Fatigue [Not Recovered/Not Resolved]
  - Arthralgia [Not Recovered/Not Resolved]
  - Upper respiratory tract infection [Not Recovered/Not Resolved]
  - Ill-defined disorder [Not Recovered/Not Resolved]
  - Weight fluctuation [Not Recovered/Not Resolved]
  - Diarrhoea [Not Recovered/Not Resolved]
  - Abdominal pain [Not Recovered/Not Resolved]
  - Impaired quality of life [Not Recovered/Not Resolved]
  - Infection [Not Recovered/Not Resolved]
  - Fatigue [Not Recovered/Not Resolved]
  - Headache [Not Recovered/Not Resolved]
  - Arthralgia [Not Recovered/Not Resolved]
  - Rash [Not Recovered/Not Resolved]
  - Skin irritation [Not Recovered/Not Resolved]
  - Migraine [Not Recovered/Not Resolved]
  - Hypoaesthesia [Unknown]
  - Limb injury [Unknown]
  - Wound [Unknown]
  - Diarrhoea [Not Recovered/Not Resolved]
  - Abdominal pain [Not Recovered/Not Resolved]
  - Impaired quality of life [Not Recovered/Not Resolved]
  - Infection [Not Recovered/Not Resolved]
  - Fatigue [Not Recovered/Not Resolved]
  - Arthralgia [Not Recovered/Not Resolved]
  - Upper respiratory tract infection [Not Recovered/Not Resolved]
  - Nasal congestion [Not Recovered/Not Resolved]
  - Impaired quality of life [Unknown]
  - Cerebrovascular accident [Unknown]

NARRATIVE: CASE EVENT DATE: 20241220
